FAERS Safety Report 4284093-0 (Version None)
Quarter: 2004Q1

REPORT INFORMATION
  Report Type: 
  Country: None (occurrence: None)
  Receive Date: 20040130
  Receipt Date: 20040121
  Transmission Date: 20041129
  Serious: Yes (Other)
  Sender: FDA-Public Use
  Company Number: 2004004119

PATIENT
  Age: 59 Year
  Sex: Male
  Weight: 83.0083 kg

DRUGS (2)
  1. UNISOM [Suspect]
     Indication: SLEEP DISORDER
     Dosage: 3 TABS THEN 1-2 TABS HS, ORAL
     Route: 048
     Dates: start: 20000101, end: 20040121
  2. UNISOM [Suspect]
     Indication: SLEEP DISORDER
     Dosage: 1-2 SLEEPGELS HS, ORAL
     Route: 048
     Dates: start: 20010101, end: 20040101

REACTIONS (1)
  - DEPENDENCE [None]
